FAERS Safety Report 18742634 (Version 2)
Quarter: 2021Q1

REPORT INFORMATION
  Report Type: Spontaneous
  Country: US (occurrence: US)
  Receive Date: 20210114
  Receipt Date: 20210302
  Transmission Date: 20210419
  Serious: No
  Sender: FDA-Public Use
  Company Number: US-ELI_LILLY_AND_COMPANY-US202101001326

PATIENT
  Age: 90 Year
  Sex: Male

DRUGS (3)
  1. BAMLANIVIMAB 700MG [Suspect]
     Active Substance: BAMLANIVIMAB
     Indication: COVID-19
     Dosage: UNK, UNKNOWN
     Route: 042
     Dates: start: 20201231
  2. ZINC. [Suspect]
     Active Substance: ZINC
     Indication: PRODUCT USED FOR UNKNOWN INDICATION
     Dosage: UNK, UNKNOWN
     Route: 065
  3. VITAMINE C [Suspect]
     Active Substance: ASCORBIC ACID
     Indication: PRODUCT USED FOR UNKNOWN INDICATION
     Dosage: UNK, UNKNOWN
     Route: 065

REACTIONS (3)
  - Decreased appetite [Not Recovered/Not Resolved]
  - Nausea [Not Recovered/Not Resolved]
  - Diarrhoea [Unknown]

NARRATIVE: CASE EVENT DATE: 20210101
